FAERS Safety Report 19891012 (Version 3)
Quarter: 2021Q4

REPORT INFORMATION
  Report Type: Report from Study
  Country: US (occurrence: US)
  Receive Date: 20210928
  Receipt Date: 20211204
  Transmission Date: 20220303
  Serious: Yes (Other)
  Sender: FDA-Public Use
  Company Number: NVSC2021US212856

PATIENT
  Sex: Female

DRUGS (1)
  1. ENTRESTO [Suspect]
     Active Substance: SACUBITRIL\VALSARTAN
     Indication: Cardiac flutter
     Dosage: UNK UNK, BID
     Route: 048

REACTIONS (9)
  - Cardiac flutter [Recovering/Resolving]
  - Dizziness [Unknown]
  - Asthenia [Recovering/Resolving]
  - Weight decreased [Unknown]
  - Malaise [Unknown]
  - Feeling abnormal [Unknown]
  - Migraine [Unknown]
  - Sleep disorder [Unknown]
  - Product use in unapproved indication [Unknown]
